FAERS Safety Report 24706464 (Version 2)
Quarter: 2024Q4

REPORT INFORMATION
  Report Type: Report from Study
  Country: CA (occurrence: CA)
  Receive Date: 20241206
  Receipt Date: 20241225
  Transmission Date: 20250114
  Serious: Yes (Other)
  Sender: ABBVIE
  Company Number: CA-ABBVIE-6032146

PATIENT
  Age: 88 Year
  Sex: Male

DRUGS (1)
  1. SKYRIZI [Suspect]
     Active Substance: RISANKIZUMAB-RZAA
     Indication: Product used for unknown indication
     Route: 058

REACTIONS (4)
  - Cerebrovascular accident [Unknown]
  - Renal disorder [Unknown]
  - Catheter site haemorrhage [Unknown]
  - Malaise [Unknown]

NARRATIVE: CASE EVENT DATE: 20241128
